FAERS Safety Report 8477606-6 (Version None)
Quarter: 2012Q2

REPORT INFORMATION
  Report Type: 
  Country: None (occurrence: None)
  Receive Date: 20120629
  Receipt Date: 20120619
  Transmission Date: 20120825
  Serious: Yes (Other)
  Sender: FDA-Public Use
  Company Number: US-CELGENEUS-163-50794-12062835

PATIENT

DRUGS (6)
  1. VIDAZA [Suspect]
     Dosage: 32 MILLIGRAM/SQ. METER
     Route: 065
  2. MINIMETHOTREXATE [Concomitant]
     Indication: PROPHYLAXIS AGAINST GRAFT VERSUS HOST DISEASE
     Dosage: 5 MILLIGRAM/SQ. METER
     Route: 065
  3. FLUDARABINE PHOSPHATE [Concomitant]
     Dosage: 40 MILLIGRAM/SQ. METER
     Route: 065
  4. BUSULFAN [Concomitant]
     Dosage: 130 MILLIGRAM/SQ. METER
     Route: 065
  5. THYMOGLOBULIN [Concomitant]
     Dosage: 2.5 MILLIGRAM/KILOGRAM
     Route: 065
  6. TACROLIMUS [Concomitant]
     Indication: PROPHYLAXIS AGAINST GRAFT VERSUS HOST DISEASE
     Dosage: 5 MILLIGRAM/SQ. METER
     Route: 065

REACTIONS (5)
  - FATIGUE [None]
  - ACUTE GRAFT VERSUS HOST DISEASE [None]
  - THROMBOCYTOPENIA [None]
  - NAUSEA [None]
  - NEOPLASM RECURRENCE [None]
